FAERS Safety Report 18668484 (Version 1)
Quarter: 2020Q4

REPORT INFORMATION
  Report Type: Report from Study
  Country: FR (occurrence: FR)
  Receive Date: 20201228
  Receipt Date: 20201228
  Transmission Date: 20210114
  Serious: Yes (Hospitalization)
  Sender: FDA-Public Use
  Company Number: FR-ROCHE-2735573

PATIENT
  Sex: Female
  Weight: 15 kg

DRUGS (3)
  1. TEMOZOLOMIDE. [Suspect]
     Active Substance: TEMOZOLOMIDE
     Indication: NEUROBLASTOMA
     Dosage: LAST DOSE ADMINISTERED PRIOR TO SAE ONSET: 03/FEB/2017
     Route: 065
     Dates: start: 20160831
  2. BEVACIZUMAB. [Suspect]
     Active Substance: BEVACIZUMAB
     Indication: NEUROBLASTOMA
     Dosage: LAST DOSE ADMINISTERED PRIOR TO SAE ONSET: 30/JAN/2017
     Route: 042
     Dates: start: 20160831
  3. IRINOTECAN [Suspect]
     Active Substance: IRINOTECAN
     Indication: NEUROBLASTOMA
     Dosage: LAST DOSE ADMINISTERED PRIOR TO SAE ONSET: 03/FEB/2017
     Route: 065
     Dates: start: 20160831

REACTIONS (1)
  - Skin infection [Recovered/Resolved]

NARRATIVE: CASE EVENT DATE: 20170217
